FAERS Safety Report 6871455-8 (Version None)
Quarter: 2010Q3

REPORT INFORMATION
  Report Type: 
  Country: None (occurrence: None)
  Receive Date: 20100723
  Receipt Date: 20100719
  Transmission Date: 20110219
  Serious: Yes (Hospitalization)
  Sender: FDA-Public Use
  Company Number: FR-BAYER-201031720GPV

PATIENT
  Age: 84 Year
  Sex: Male

DRUGS (12)
  1. CIFLOX [Suspect]
     Indication: PROSTATITIS
     Dosage: TOTAL DAILY DOSE: 200 MG
     Route: 048
     Dates: start: 20100201
  2. PREVISCAN [Concomitant]
     Dosage: UNIT DOSE: 20 MG
  3. NISIS [Concomitant]
     Dosage: UNIT DOSE: 40 MG
  4. LIPANTHYL [Concomitant]
  5. DIGOXIN [Concomitant]
  6. LASIX [Concomitant]
  7. DOLIPRANE [Concomitant]
     Dosage: TOTAL DAILY DOSE: 4 G
  8. DOLIPRANE [Concomitant]
     Dosage: TOTAL DAILY DOSE: 3 G
  9. LANTUS [Concomitant]
     Dosage: 1-0-0
  10. LANTUS [Concomitant]
  11. HEMIGOXINE [Concomitant]
     Dosage: 1-0-0
  12. NOVORAPID [Concomitant]
     Dosage: AS USED: 10+8+10 IU

REACTIONS (7)
  - ABNORMAL BEHAVIOUR [None]
  - ARTHRALGIA [None]
  - DECREASED APPETITE [None]
  - MYALGIA [None]
  - TENDON DISORDER [None]
  - UVEITIS [None]
  - VISUAL ACUITY REDUCED [None]
